FAERS Safety Report 7590666-X (Version None)
Quarter: 2011Q3

REPORT INFORMATION
  Report Type: 
  Country: None (occurrence: None)
  Receive Date: 20110705
  Receipt Date: 20110627
  Transmission Date: 20111222
  Serious: Yes (Other)
  Sender: FDA-Public Use
  Company Number: PHHY2011GB56480

PATIENT
  Age: 76 Year
  Sex: Female

DRUGS (1)
  1. METRONIDAZOLE [Suspect]
     Indication: TOOTH DISORDER
     Dosage: 200 MG, TID
     Dates: start: 20110615

REACTIONS (1)
  - VISUAL IMPAIRMENT [None]
